FAERS Safety Report 8424089-8 (Version None)
Quarter: 2012Q2

REPORT INFORMATION
  Report Type: 
  Country: None (occurrence: None)
  Receive Date: 20120608
  Receipt Date: 20110509
  Transmission Date: 20120825
  Serious: No
  Sender: FDA-Public Use
  Company Number: US-ASTRAZENECA-2011SE27521

PATIENT
  Age: 5 Year
  Sex: Male
  Weight: 25.9 kg

DRUGS (6)
  1. ALBUTEROL [Concomitant]
  2. SINGULAIR [Concomitant]
  3. PULMICORT [Suspect]
     Indication: ASTHMA
     Route: 055
  4. ASAPRO [Concomitant]
  5. FLONASE [Concomitant]
  6. CLARITIN [Concomitant]

REACTIONS (2)
  - DRUG ADMINISTERED TO PATIENT OF INAPPROPRIATE AGE [None]
  - ASTHMA [None]
